FAERS Safety Report 25238356 (Version 2)
Quarter: 2025Q2

REPORT INFORMATION
  Report Type: Spontaneous
  Country: IE (occurrence: IE)
  Receive Date: 20250425
  Receipt Date: 20250512
  Transmission Date: 20250717
  Serious: Yes (Other)
  Sender: TAKEDA
  Company Number: None

PATIENT
  Age: 30 Year
  Sex: Male
  Weight: 70.37 kg

DRUGS (11)
  1. LISDEXAMFETAMINE DIMESYLATE [Suspect]
     Active Substance: LISDEXAMFETAMINE DIMESYLATE
     Indication: Attention deficit hyperactivity disorder
     Dosage: 40 MILLIGRAM, QD
     Dates: start: 20240430, end: 20240801
  2. LISDEXAMFETAMINE DIMESYLATE [Suspect]
     Active Substance: LISDEXAMFETAMINE DIMESYLATE
     Indication: Narcolepsy
     Dosage: 40 MILLIGRAM, QD
     Dates: start: 20240428, end: 20240522
  3. LISDEXAMFETAMINE DIMESYLATE [Suspect]
     Active Substance: LISDEXAMFETAMINE DIMESYLATE
     Dosage: 20 MILLIGRAM, QD
     Dates: start: 202406, end: 202407
  4. LISDEXAMFETAMINE DIMESYLATE [Suspect]
     Active Substance: LISDEXAMFETAMINE DIMESYLATE
     Dosage: 30 MILLIGRAM, QD
     Dates: start: 2024, end: 2024
  5. AGOMELATINE [Concomitant]
     Active Substance: AGOMELATINE
     Indication: Sleep disorder
  6. AGOMELATINE [Concomitant]
     Active Substance: AGOMELATINE
     Indication: Depression
  7. PROPRANOLOL HYDROCHLORIDE [Concomitant]
     Active Substance: PROPRANOLOL HYDROCHLORIDE
     Indication: Hyperthyroidism
  8. PEPPERMINT OIL [Concomitant]
     Active Substance: PEPPERMINT OIL
     Indication: Irritable bowel syndrome
  9. Dexamfetamine campus [Concomitant]
     Indication: Attention deficit hyperactivity disorder
     Dosage: 5 MILLIGRAM, QD
     Dates: start: 202407, end: 202408
  10. Dexamfetamine campus [Concomitant]
     Indication: Narcolepsy
     Dosage: 5 MILLIGRAM, QD
     Dates: start: 202408, end: 202409
  11. Dexamfetamine campus [Concomitant]
     Dosage: 5 MILLIGRAM, QD
     Dates: start: 202409

REACTIONS (4)
  - Abdominal discomfort [Recovered/Resolved]
  - Gastrointestinal pain [Recovered/Resolved]
  - Allergic reaction to excipient [Recovered/Resolved]
  - Irritable bowel syndrome [Recovered/Resolved]

NARRATIVE: CASE EVENT DATE: 20240430
